FAERS Safety Report 6188940-7 (Version None)
Quarter: 2009Q2

REPORT INFORMATION
  Report Type: 
  Country: None (occurrence: None)
  Receive Date: 20090513
  Receipt Date: 20090506
  Transmission Date: 20091009
  Serious: Yes (Hospitalization)
  Sender: FDA-Public Use
  Company Number: PHHY2009CL17300

PATIENT
  Age: 75 Year
  Sex: Male

DRUGS (2)
  1. TAREG D [Suspect]
     Indication: HYPERTENSION
     Dosage: 160 MG/12.5 MG
  2. ATENOLOL [Concomitant]

REACTIONS (1)
  - EFFUSION [None]
